FAERS Safety Report 26149120 (Version 1)
Quarter: 2025Q4

REPORT INFORMATION
  Report Type: Spontaneous
  Country: US (occurrence: US)
  Receive Date: 20251212
  Receipt Date: 20251212
  Transmission Date: 20260118
  Serious: Yes (Life-Threatening, Hospitalization, Other)
  Sender: RANBAXY
  Company Number: US-SUN PHARMACEUTICAL INDUSTRIES LTD-2025R1-541289

PATIENT
  Age: 64 Year
  Sex: Female

DRUGS (3)
  1. PRAMIPEXOLE [Suspect]
     Active Substance: PRAMIPEXOLE
     Indication: Restless legs syndrome
     Dosage: 0.5 MILLIGRAM, TID
     Route: 065
     Dates: start: 201906
  2. PRAMIPEXOLE [Suspect]
     Active Substance: PRAMIPEXOLE
     Dosage: 1.5 MILLIGRAM, TID
     Route: 065
     Dates: start: 201912
  3. PRAMIPEXOLE [Suspect]
     Active Substance: PRAMIPEXOLE
     Dosage: 3 MILLIGRAM, TID
     Route: 065
     Dates: start: 202409, end: 2025

REACTIONS (7)
  - Suicidal ideation [Recovered/Resolved]
  - Therapeutic response decreased [Unknown]
  - Depressed mood [Recovered/Resolved]
  - Hallucination, tactile [Recovered/Resolved]
  - Condition aggravated [Recovering/Resolving]
  - Skin abrasion [Recovered/Resolved]
  - Neurodermatitis [Recovered/Resolved]

NARRATIVE: CASE EVENT DATE: 20250101
